FAERS Safety Report 12905299 (Version 1)
Quarter: 2016Q4

REPORT INFORMATION
  Report Type: Report from Study
  Country: US (occurrence: US)
  Receive Date: 20161103
  Receipt Date: 20161103
  Transmission Date: 20170207
  Serious: Yes (Other)
  Sender: FDA-Public Use
  Company Number: US-ROCHE-1227925

PATIENT

DRUGS (2)
  1. LAPATINIB [Suspect]
     Active Substance: LAPATINIB
     Indication: SQUAMOUS CELL CARCINOMA
     Route: 048
  2. CAPECITABINE. [Suspect]
     Active Substance: CAPECITABINE
     Indication: SQUAMOUS CELL CARCINOMA
     Dosage: FOR 14/21 DAY CYCLES
     Route: 048

REACTIONS (15)
  - Infection [Unknown]
  - Diarrhoea [Unknown]
  - Rash [Unknown]
  - Pain [Unknown]
  - Neutropenia [Unknown]
  - Fatigue [Unknown]
  - Nausea [Unknown]
  - Vomiting [Unknown]
  - Dehydration [Unknown]
  - Palmar-plantar erythrodysaesthesia syndrome [Unknown]
  - Febrile neutropenia [Unknown]
  - Hyponatraemia [Unknown]
  - Mucosal inflammation [Unknown]
  - Neuropathy peripheral [Unknown]
  - Acute kidney injury [Unknown]
